FAERS Safety Report 17304937 (Version 3)
Quarter: 2020Q3

REPORT INFORMATION
  Report Type: Spontaneous
  Country: US (occurrence: US)
  Receive Date: 20200123
  Receipt Date: 20200706
  Transmission Date: 20201102
  Serious: No
  Sender: FDA-Public Use
  Company Number: US-PFIZER INC-2020029762

PATIENT
  Age: 53 Year
  Sex: Female

DRUGS (1)
  1. XELJANZ [Suspect]
     Active Substance: TOFACITINIB CITRATE
     Indication: RHEUMATOID ARTHRITIS
     Dosage: 5 MG, 2X/DAY
     Route: 048
     Dates: start: 2018

REACTIONS (13)
  - Blister [Unknown]
  - Condition aggravated [Unknown]
  - Burning sensation [Unknown]
  - Psoriasis [Unknown]
  - Onychomadesis [Unknown]
  - Nail discolouration [Unknown]
  - Blood cholesterol increased [Unknown]
  - Weight decreased [Unknown]
  - Joint swelling [Unknown]
  - Depressed mood [Unknown]
  - Stress [Unknown]
  - Foot deformity [Unknown]
  - Arthralgia [Unknown]
